FAERS Safety Report 8991408 (Version 1)
Quarter: 2012Q4

REPORT INFORMATION
  Report Type: 
  Country: JP (occurrence: JP)
  Receive Date: 20121229
  Receipt Date: 20121229
  Transmission Date: 20130627
  Serious: Yes (Hospitalization)
  Sender: FDA-Public Use
  Company Number: JP-009507513-2012SP025018

PATIENT
  Age: 67 Year
  Sex: Female
  Weight: 45 kg

DRUGS (9)
  1. PEGINTRON [Suspect]
     Indication: CHRONIC HEPATITIS C
     Dosage: 1.5 Microgram per kilogram, qw
     Route: 058
     Dates: start: 20120314, end: 20120418
  2. REBETOL [Suspect]
     Indication: CHRONIC HEPATITIS C
     Dosage: 600 mg, QD
     Route: 048
     Dates: start: 20120314, end: 20120418
  3. TELAVIC [Suspect]
     Indication: CHRONIC HEPATITIS C
     Dosage: 1500 mg,
     Route: 048
     Dates: start: 20120314, end: 20120418
  4. ANTIVIRAL (UNSPECIFIED) [Suspect]
     Indication: HEPATITIS C
     Dosage: 1500 mg, QD
     Route: 048
     Dates: start: 20120314, end: 20120418
  5. LENDORMIN [Concomitant]
     Indication: PROPHYLAXIS
     Dosage: 0.25 mg, Once,formulation: POR
     Route: 048
     Dates: start: 20120314, end: 20120331
  6. LENDORMIN [Concomitant]
     Dosage: 0.25 mg, UNK
     Route: 048
     Dates: start: 20120425
  7. ALLELOCK [Concomitant]
     Indication: PROPHYLAXIS
     Dosage: ,5 mg, Once formulation: POR
     Route: 048
     Dates: start: 20120314, end: 20120328
  8. ALLELOCK [Concomitant]
     Dosage: 5 mg, Once
     Route: 048
     Dates: start: 20120328, end: 20120403
  9. DEPAS [Concomitant]
     Indication: PROPHYLAXIS
     Dosage: 0.5 mg, qd
     Route: 048
     Dates: start: 20120328

REACTIONS (2)
  - Decreased appetite [Recovering/Resolving]
  - Haemoglobin decreased [Recovered/Resolved]
